FAERS Safety Report 10309956 (Version 1)
Quarter: 2014Q3

REPORT INFORMATION
  Report Type: Spontaneous
  Country: US (occurrence: None)
  Receive Date: 20140715
  Receipt Date: 20140715
  Transmission Date: 20150326
  Serious: No
  Sender: FDA-Public Use
  Company Number: None

PATIENT
  Age: 59 Year
  Sex: Female
  Weight: 79.83 kg

DRUGS (1)
  1. HUMALOG [Suspect]
     Active Substance: INSULIN LISPRO
     Indication: TYPE 1 DIABETES MELLITUS
     Dosage: BASAL WITH BOLUS  INSULIN PUMP
     Dates: start: 20140611, end: 20140629

REACTIONS (10)
  - Blood glucose decreased [None]
  - Feeling hot [None]
  - Cold sweat [None]
  - Visual impairment [None]
  - Therapeutic response decreased [None]
  - Pruritus generalised [None]
  - Hyperhidrosis [None]
  - Feeling cold [None]
  - Erythema [None]
  - Dizziness [None]

NARRATIVE: CASE EVENT DATE: 20140702
